FAERS Safety Report 8333289-7 (Version None)
Quarter: 2012Q2

REPORT INFORMATION
  Report Type: 
  Country: None (occurrence: None)
  Receive Date: 20120503
  Receipt Date: 20120423
  Transmission Date: 20120825
  Serious: Yes (Disabling)
  Sender: FDA-Public Use
  Company Number: US-BAYER-2012-039702

PATIENT
  Age: 43 Year
  Sex: Female

DRUGS (2)
  1. CLIMARA [Suspect]
     Dosage: UNK
     Route: 062
     Dates: start: 20100101
  2. PREMARIN [Suspect]
     Dosage: UNK
     Route: 048
     Dates: start: 20100101

REACTIONS (5)
  - GENERAL PHYSICAL HEALTH DETERIORATION [None]
  - FATIGUE [None]
  - LETHARGY [None]
  - NO ADVERSE EVENT [None]
  - DEPRESSION [None]
